FAERS Safety Report 7519207-X (Version None)
Quarter: 2011Q2

REPORT INFORMATION
  Report Type: 
  Country: None (occurrence: None)
  Receive Date: 20110602
  Receipt Date: 20110411
  Transmission Date: 20111010
  Serious: No
  Sender: FDA-Public Use
  Company Number: US-BRISTOL-MYERS SQUIBB COMPANY-15618606

PATIENT
  Age: 30 Year
  Sex: Female
  Weight: 65 kg

DRUGS (1)
  1. KOMBIGLYZE XR [Suspect]
     Dates: start: 20110302

REACTIONS (4)
  - DRUG INEFFECTIVE [None]
  - CYSTITIS [None]
  - HAEMATURIA [None]
  - FUNGAL INFECTION [None]
